FAERS Safety Report 23032863 (Version 1)
Quarter: 2023Q4

REPORT INFORMATION
  Report Type: Spontaneous
  Country: DE (occurrence: None)
  Receive Date: 20231005
  Receipt Date: 20231005
  Transmission Date: 20240109
  Serious: Yes (Other)
  Sender: FDA-Public Use
  Company Number: DE-ROCHE-3401275

PATIENT
  Age: 52 Year
  Sex: Male
  Weight: 80 kg

DRUGS (2)
  1. VABYSMO [Suspect]
     Active Substance: FARICIMAB-SVOA
     Indication: Macular degeneration
     Dosage: ON 07/JUN/2023, HE RECEIVED LAST DOSE OF FARICIMAB.
     Route: 050
     Dates: start: 20230607
  2. VABYSMO [Suspect]
     Active Substance: FARICIMAB-SVOA
     Indication: Diabetes mellitus

REACTIONS (1)
  - Intra-ocular injection complication [Not Recovered/Not Resolved]

NARRATIVE: CASE EVENT DATE: 20230607
